FAERS Safety Report 15352585 (Version 2)
Quarter: 2018Q3

REPORT INFORMATION
  Report Type: Spontaneous
  Country: JP (occurrence: JP)
  Receive Date: 20180905
  Receipt Date: 20180905
  Transmission Date: 20181010
  Serious: Yes (Death, Life-Threatening, Hospitalization, Other)
  Sender: FDA-Public Use
  Company Number: PHHY2018JP084456

PATIENT
  Age: 80 Year
  Sex: Female

DRUGS (2)
  1. PREDNISOLONE. [Suspect]
     Active Substance: PREDNISOLONE
     Indication: FACTOR VIII DEFICIENCY
     Dosage: 1 MG/KG, QD
     Route: 065
  2. PREDNISOLONE. [Suspect]
     Active Substance: PREDNISOLONE
     Indication: RHEUMATOID ARTHRITIS
     Dosage: 5 MG, QD
     Route: 065

REACTIONS (6)
  - Hypoperfusion [Fatal]
  - Multiple organ dysfunction syndrome [Fatal]
  - Respiratory acidosis [Unknown]
  - Metabolic acidosis [Unknown]
  - Thrombosis [Fatal]
  - Infarction [Unknown]
